FAERS Safety Report 19799257 (Version 1)
Quarter: 2021Q3

REPORT INFORMATION
  Report Type: Spontaneous
  Country: CN (occurrence: CN)
  Receive Date: 20210907
  Receipt Date: 20210907
  Transmission Date: 20211014
  Serious: Yes (Other)
  Sender: FDA-Public Use
  Company Number: CN-ASTRAZENECA-2021A710575

PATIENT
  Age: 53 Year
  Sex: Male
  Weight: 55 kg

DRUGS (1)
  1. IMFINZI [Suspect]
     Active Substance: DURVALUMAB
     Indication: NON-SMALL CELL LUNG CANCER STAGE III
     Dosage: LAST DOSE WAS 500MG / WEEK
     Route: 042
     Dates: start: 20201215, end: 20210108

REACTIONS (3)
  - Pneumonia [Unknown]
  - Pneumonitis [Unknown]
  - White blood cell count increased [Unknown]
